FAERS Safety Report 20490735 (Version 2)
Quarter: 2022Q1

REPORT INFORMATION
  Report Type: Spontaneous
  Country: BR (occurrence: BR)
  Receive Date: 20220218
  Receipt Date: 20220302
  Transmission Date: 20220424
  Serious: Yes (Other)
  Sender: FDA-Public Use
  Company Number: BR-SA-SAC20220216001497

PATIENT
  Age: 32 Year
  Sex: Male
  Weight: 85 kg

DRUGS (6)
  1. CLOBAZAM [Suspect]
     Active Substance: CLOBAZAM
     Indication: Sleep disorder
     Dosage: UNK, QD
     Route: 048
     Dates: start: 1989
  2. NORTRIPTYLINE [Concomitant]
     Active Substance: NORTRIPTYLINE
     Indication: Depression
     Route: 048
  3. ESCITALOPRAM [Concomitant]
     Active Substance: ESCITALOPRAM OXALATE
     Indication: Anxiety
     Route: 048
  4. NITRAZEPAM [Concomitant]
     Active Substance: NITRAZEPAM
     Indication: Anxiety
     Route: 048
  5. LITHIUM CARBONATE [Concomitant]
     Active Substance: LITHIUM CARBONATE
     Indication: Product used for unknown indication
     Route: 048
  6. NEOZINE [LEVOMEPROMAZINE] [Concomitant]
     Indication: Sleep disorder
     Route: 048

REACTIONS (4)
  - Drug dependence [Unknown]
  - Sleep disorder [Unknown]
  - Product use in unapproved indication [Unknown]
  - Product availability issue [Unknown]

NARRATIVE: CASE EVENT DATE: 19890101
